FAERS Safety Report 9343422 (Version 2)
Quarter: 2014Q1

REPORT INFORMATION
  Report Type: Spontaneous
  Country: US (occurrence: US)
  Receive Date: 20130612
  Receipt Date: 20140328
  Transmission Date: 20141002
  Serious: No
  Sender: FDA-Public Use
  Company Number: US-BIOGENIDEC-2013BI049127

PATIENT
  Age: 34 Year
  Sex: Female

DRUGS (2)
  1. AVONEX [Suspect]
     Indication: MULTIPLE SCLEROSIS
     Route: 030
     Dates: start: 20130420, end: 20130516
  2. AVONEX [Suspect]
     Indication: MULTIPLE SCLEROSIS
     Route: 030
     Dates: start: 20130523

REACTIONS (5)
  - Lyme disease [Not Recovered/Not Resolved]
  - Dysarthria [Unknown]
  - Influenza like illness [Recovered/Resolved]
  - Depression [Not Recovered/Not Resolved]
  - Dizziness [Unknown]
